FAERS Safety Report 13995227 (Version 1)
Quarter: 2017Q3

REPORT INFORMATION
  Report Type: Spontaneous
  Country: US (occurrence: US)
  Receive Date: 20170921
  Receipt Date: 20170921
  Transmission Date: 20171128
  Serious: No
  Sender: FDA-Public Use
  Company Number: US-LUPIN PHARMACEUTICALS INC.-E2B_00006248

PATIENT
  Sex: Male
  Weight: 90.72 kg

DRUGS (1)
  1. CEFUROXIME AXETIL TABLETS USP, 500 MG [Suspect]
     Active Substance: CEFUROXIME AXETIL
     Indication: SINUSITIS
     Dosage: TOOK THE MEDICATION IN A TITRATION MANNER STARTING 3 TABLETS A DAY AND THEN 2 TABLETS A DAY AND SO O
     Route: 048
     Dates: start: 201608

REACTIONS (2)
  - Anosmia [Not Recovered/Not Resolved]
  - Ageusia [Not Recovered/Not Resolved]
